FAERS Safety Report 17413122 (Version 1)
Quarter: 2020Q1

REPORT INFORMATION
  Report Type: Spontaneous
  Country: US (occurrence: US)
  Receive Date: 20200213
  Receipt Date: 20200213
  Transmission Date: 20200409
  Serious: No
  Sender: FDA-Public Use
  Company Number: US-LUPIN PHARMACEUTICALS INC.-2020-00665

PATIENT
  Sex: Male
  Weight: 84 kg

DRUGS (3)
  1. PROPRANOLOL [Concomitant]
     Active Substance: PROPRANOLOL HYDROCHLORIDE
     Indication: PRODUCT USED FOR UNKNOWN INDICATION
     Dosage: UNK
     Route: 065
  2. PRILOSEC [Concomitant]
     Active Substance: OMEPRAZOLE MAGNESIUM
     Indication: PRODUCT USED FOR UNKNOWN INDICATION
     Dosage: UNK
     Route: 065
  3. IMIPRAMINE PAMOATE CAPSULES 150 MG [Suspect]
     Active Substance: IMIPRAMINE PAMOATE
     Indication: ANXIETY
     Dosage: 150 MILLIGRAM, QD
     Route: 048

REACTIONS (1)
  - Migraine [Not Recovered/Not Resolved]
